FAERS Safety Report 8155754-8 (Version None)
Quarter: 2012Q1

REPORT INFORMATION
  Report Type: 
  Country: None (occurrence: None)
  Receive Date: 20120215
  Receipt Date: 20120207
  Transmission Date: 20120608
  Serious: Yes (Hospitalization, Other)
  Sender: FDA-Public Use
  Company Number: ADR-2012-00313

PATIENT
  Age: 61 Year
  Sex: Male

DRUGS (1)
  1. BACLOFEN [Suspect]

REACTIONS (4)
  - MUSCLE SPASMS [None]
  - DECUBITUS ULCER [None]
  - SPONDYLITIS [None]
  - INFECTION [None]
